FAERS Safety Report 9795420 (Version 1)
Quarter: 2014Q1

REPORT INFORMATION
  Report Type: Spontaneous
  Country: FR (occurrence: FR)
  Receive Date: 20140103
  Receipt Date: 20140103
  Transmission Date: 20141002
  Serious: Yes (Hospitalization)
  Sender: FDA-Public Use
  Company Number: FR-JNJFOC-20131217545

PATIENT
  Age: 76 Year
  Sex: Male

DRUGS (5)
  1. XARELTO [Suspect]
     Indication: ARRHYTHMIA SUPRAVENTRICULAR
     Route: 048
     Dates: start: 20130904, end: 20131120
  2. HEMIGOXINE [Concomitant]
     Route: 065
     Dates: start: 20130904
  3. SERETIDE [Concomitant]
     Route: 065
  4. LASILIX [Concomitant]
     Route: 065
  5. KALEORID [Concomitant]
     Route: 065

REACTIONS (2)
  - Rectal haemorrhage [Recovered/Resolved]
  - Condition aggravated [Recovered/Resolved]
